FAERS Safety Report 11620224 (Version 1)
Quarter: 2015Q4

REPORT INFORMATION
  Report Type: Spontaneous
  Country: FR (occurrence: FR)
  Receive Date: 20151012
  Receipt Date: 20151012
  Transmission Date: 20160304
  Serious: Yes (Other)
  Sender: FDA-Public Use
  Company Number: FR-BAXTER-2015BAX054646

PATIENT
  Age: 7 Year
  Sex: Male
  Weight: 21.2 kg

DRUGS (43)
  1. DAUNORUBICINE [Suspect]
     Active Substance: DAUNORUBICIN
     Indication: ACUTE LYMPHOCYTIC LEUKAEMIA
     Dosage: 30 MG/M2, INDUCTION
     Route: 042
     Dates: start: 20150717
  2. DAUNORUBICINE [Suspect]
     Active Substance: DAUNORUBICIN
     Dosage: 30 MG/M2, INDUCTION
     Route: 042
     Dates: start: 20150731
  3. DEXAMETHASONE. [Suspect]
     Active Substance: DEXAMETHASONE
     Dosage: 10 MG/M2/DAY, INDUCTION
     Route: 048
     Dates: start: 20150807
  4. DEXAMETHASONE. [Suspect]
     Active Substance: DEXAMETHASONE
     Dosage: 10 MG/M2/DAY, INDUCTION
     Route: 048
     Dates: end: 20150813
  5. DEXAMETHASONE. [Suspect]
     Active Substance: DEXAMETHASONE
     Dosage: PROGRESSIVE REDUCTION, INDUCTION
     Route: 048
     Dates: start: 20150815
  6. DEXAMETHASONE. [Suspect]
     Active Substance: DEXAMETHASONE
     Dosage: INDUCTION TRIPLE INTRATHECAL
     Route: 037
     Dates: start: 20150824
  7. KIDROLASE [Suspect]
     Active Substance: ASPARAGINASE
     Dosage: 5000 IU/M2, INDUCTION
     Route: 042
     Dates: start: 20150813
  8. SOLUPRED [Suspect]
     Active Substance: PREDNISOLONE
     Indication: ACUTE LYMPHOCYTIC LEUKAEMIA
     Dosage: DAY 1, PRE-PHASE
     Route: 048
     Dates: start: 20150710
  9. VINCRISTINE TEVA [Suspect]
     Active Substance: VINCRISTINE
     Indication: ACUTE LYMPHOCYTIC LEUKAEMIA
     Dosage: 1.5 MG/M2, INDUCTION
     Route: 042
     Dates: start: 20150717
  10. KIDROLASE [Suspect]
     Active Substance: ASPARAGINASE
     Indication: ACUTE LYMPHOCYTIC LEUKAEMIA
     Dosage: 5000 IU/M2, INDUCTION
     Route: 042
     Dates: start: 20150721
  11. KIDROLASE [Suspect]
     Active Substance: ASPARAGINASE
     Dosage: 5000 IU/M2, INDUCTION
     Route: 042
     Dates: start: 20150807
  12. ARACYTINE [Suspect]
     Active Substance: CYTARABINE
     Dosage: INDUCTION TRIPLE INTRATHECAL
     Route: 037
     Dates: start: 20150803
  13. METHOTREXATE [Suspect]
     Active Substance: METHOTREXATE
     Dosage: INDUCTION TRIPLE INTRATHECAL
     Route: 037
     Dates: start: 20150824
  14. UROMITEXAN 5 G/50 ML, SOLUTION INJECTABLE POUR PERFUSION EN FLACON [Suspect]
     Active Substance: MESNA
     Indication: ACUTE LYMPHOCYTIC LEUKAEMIA
     Dosage: 350 MG/M2, CONSOLIDATION
     Route: 040
     Dates: start: 20150822, end: 20150926
  15. SOLUPRED [Suspect]
     Active Substance: PREDNISOLONE
     Dosage: ON DAY 4, PRE-PHASE
     Route: 048
  16. SOLUPRED [Suspect]
     Active Substance: PREDNISOLONE
     Dosage: DAY 5 TO DAY 7 IN TWO INTAKES, PRE-PHASE
     Route: 048
     Dates: end: 20150716
  17. DEXAMETHASONE. [Suspect]
     Active Substance: DEXAMETHASONE
     Dosage: 10 MG/M2/DAY, INDUCTION
     Route: 048
     Dates: start: 20150731
  18. DEXAMETHASONE. [Suspect]
     Active Substance: DEXAMETHASONE
     Dosage: INDUCTION TRIPLE INTRATHECAL
     Route: 037
     Dates: start: 20150721
  19. PURINETHOL [Suspect]
     Active Substance: MERCAPTOPURINE
     Dosage: 60 MG/M2, CONSOLIDATION
     Route: 048
     Dates: start: 20150908, end: 20150924
  20. ARACYTINE [Suspect]
     Active Substance: CYTARABINE
     Dosage: INDUCTION TRIPLE INTRATHECAL
     Route: 037
     Dates: start: 20150915
  21. DAUNORUBICINE [Suspect]
     Active Substance: DAUNORUBICIN
     Dosage: 30 MG/M2, INDUCTION
     Route: 042
     Dates: start: 20150724
  22. VINCRISTINE TEVA [Suspect]
     Active Substance: VINCRISTINE
     Dosage: 1.5 MG/M2, INDUCTION
     Route: 042
     Dates: start: 20150807
  23. KIDROLASE [Suspect]
     Active Substance: ASPARAGINASE
     Dosage: 5000 IU/M2, INDUCTION
     Route: 042
     Dates: start: 20150810
  24. METHOTREXATE [Suspect]
     Active Substance: METHOTREXATE
     Dosage: INDUCTION TRIPLE INTRATHECAL
     Route: 037
     Dates: start: 20150915
  25. SOLUPRED [Suspect]
     Active Substance: PREDNISOLONE
     Dosage: ON DAY 3, PRE-PHASE
     Route: 048
  26. VINCRISTINE TEVA [Suspect]
     Active Substance: VINCRISTINE
     Dosage: 1.5 MG/M2, INDUCTION
     Route: 042
     Dates: start: 20150724
  27. VINCRISTINE TEVA [Suspect]
     Active Substance: VINCRISTINE
     Dosage: 1.5 MG/M2, INDUCTION
     Route: 042
     Dates: start: 20150731
  28. KIDROLASE [Suspect]
     Active Substance: ASPARAGINASE
     Dosage: 5000 IU/M2, INDUCTION
     Route: 042
     Dates: start: 20150727
  29. PURINETHOL [Suspect]
     Active Substance: MERCAPTOPURINE
     Indication: ACUTE LYMPHOCYTIC LEUKAEMIA
     Dosage: 60 MG/M2 CONSOLIDATION
     Route: 048
     Dates: start: 20150822, end: 20150830
  30. ARACYTINE [Suspect]
     Active Substance: CYTARABINE
     Route: 042
     Dates: start: 20150824, end: 20150925
  31. ENDOXAN 1000 MG, POUDRE POUR SOLUTION INJECTABLE [Suspect]
     Active Substance: CYCLOPHOSPHAMIDE
     Indication: ACUTE LYMPHOCYTIC LEUKAEMIA
     Dosage: 1 GM/M2, CONSOLIDATION
     Route: 042
     Dates: start: 20150822, end: 20150926
  32. DEXAMETHASONE. [Suspect]
     Active Substance: DEXAMETHASONE
     Dosage: 10 MG/M2/DAY, INDUCTION
     Route: 048
     Dates: start: 20150724
  33. KIDROLASE [Suspect]
     Active Substance: ASPARAGINASE
     Dosage: 5000 IU/M2, INDUCTION
     Route: 042
     Dates: start: 20150803
  34. ARACYTINE [Suspect]
     Active Substance: CYTARABINE
     Indication: ACUTE LYMPHOCYTIC LEUKAEMIA
     Dosage: INDUCTION TRIPLE INTRATHECAL
     Route: 037
     Dates: start: 20150721
  35. METHOTREXATE [Suspect]
     Active Substance: METHOTREXATE
     Indication: ACUTE LYMPHOCYTIC LEUKAEMIA
     Dosage: INDUCTION TRIPLE INTRATHECAL
     Route: 037
     Dates: start: 20150721
  36. DEXAMETHASONE. [Suspect]
     Active Substance: DEXAMETHASONE
     Dosage: INDUCTION TRIPLE INTRATHECAL
     Route: 037
     Dates: start: 20150915
  37. KIDROLASE [Suspect]
     Active Substance: ASPARAGINASE
     Dosage: 5000 IU/M2, INDUCTION
     Route: 042
     Dates: start: 20150731
  38. ARACYTINE [Suspect]
     Active Substance: CYTARABINE
     Dosage: INDUCTION TRIPLE INTRATHECAL
     Route: 037
     Dates: start: 20150824
  39. SOLUPRED [Suspect]
     Active Substance: PREDNISOLONE
     Dosage: ON DAY 2, PRE-PHASE
     Route: 048
  40. DAUNORUBICINE [Suspect]
     Active Substance: DAUNORUBICIN
     Dosage: 30 MG/M2, INDUCTION
     Route: 042
     Dates: start: 20150807
  41. DEXAMETHASONE. [Suspect]
     Active Substance: DEXAMETHASONE
     Indication: ACUTE LYMPHOCYTIC LEUKAEMIA
     Dosage: 10 MG/M2/DAY, INDUCTION
     Route: 048
     Dates: start: 20150717
  42. DEXAMETHASONE. [Suspect]
     Active Substance: DEXAMETHASONE
     Dosage: INDUCTION TRIPLE INTRATHECAL
     Route: 037
     Dates: start: 20150803
  43. METHOTREXATE [Suspect]
     Active Substance: METHOTREXATE
     Dosage: INDUCTION TRIPLE INTRATHECAL
     Route: 037
     Dates: start: 20150803

REACTIONS (2)
  - Ejection fraction decreased [Not Recovered/Not Resolved]
  - Tachycardia [Recovered/Resolved]

NARRATIVE: CASE EVENT DATE: 20150903
